FAERS Safety Report 11187114 (Version 2)
Quarter: 2016Q4

REPORT INFORMATION
  Report Type: Spontaneous
  Country: US (occurrence: US)
  Receive Date: 20150615
  Receipt Date: 20161214
  Transmission Date: 20170206
  Serious: No
  Sender: FDA-Public Use
  Company Number: US-JNJFOC-20150512514

PATIENT
  Age: 27 Year
  Sex: Female
  Weight: 65.77 kg

DRUGS (4)
  1. ORTHO TRI CYCLEN LO [Suspect]
     Active Substance: ETHINYL ESTRADIOL\NORGESTIMATE
     Indication: ACNE
     Route: 048
  2. ORTHO TRI CYCLEN LO [Suspect]
     Active Substance: ETHINYL ESTRADIOL\NORGESTIMATE
     Indication: CONTRACEPTION
     Route: 048
  3. ORTHO TRI CYCLEN LO [Suspect]
     Active Substance: ETHINYL ESTRADIOL\NORGESTIMATE
     Indication: CONTRACEPTION
     Route: 048
     Dates: start: 2016
  4. ORTHO TRI CYCLEN LO [Suspect]
     Active Substance: ETHINYL ESTRADIOL\NORGESTIMATE
     Indication: ACNE
     Route: 048
     Dates: start: 2016

REACTIONS (2)
  - Drug dose omission [Not Recovered/Not Resolved]
  - Implant site discharge [Unknown]

NARRATIVE: CASE EVENT DATE: 20150511
